FAERS Safety Report 11407864 (Version 1)
Quarter: 2015Q3

REPORT INFORMATION
  Report Type: Spontaneous
  Country: US (occurrence: US)
  Receive Date: 20150821
  Receipt Date: 20150821
  Transmission Date: 20151125
  Serious: No
  Sender: FDA-Public Use
  Company Number: US-NOVOPROD-448116

PATIENT
  Age: 63 Year
  Sex: Female

DRUGS (1)
  1. VICTOZA [Suspect]
     Active Substance: LIRAGLUTIDE
     Indication: TYPE 2 DIABETES MELLITUS
     Dosage: 1.2 MG, QD
     Route: 058
     Dates: start: 20150416

REACTIONS (6)
  - Abdominal pain upper [Unknown]
  - Fatigue [Unknown]
  - Nausea [Recovering/Resolving]
  - Flatulence [Unknown]
  - Eructation [Unknown]
  - Headache [Recovering/Resolving]
